FAERS Safety Report 7218392 (Version 5)
Quarter: 2018Q3

REPORT INFORMATION
  Report Type: Report from Study
  Country: JP (occurrence: JP)
  Receive Date: 20091215
  Receipt Date: 20180920
  Transmission Date: 20181010
  Serious: Yes (Death, Hospitalization)
  Sender: FDA-Public Use
  Company Number: PHHY2009JP54363

PATIENT
  Age: 81 Year
  Sex: Male
  Weight: 67 kg

DRUGS (5)
  1. TASIGNA [Suspect]
     Active Substance: NILOTINIB
     Indication: CHRONIC MYELOID LEUKAEMIA
     Dosage: 200MG, BID
     Route: 048
     Dates: start: 20090702, end: 20091204
  2. DIOVAN [Concomitant]
     Active Substance: VALSARTAN
     Indication: PRODUCT USED FOR UNKNOWN INDICATION
     Dosage: 80 MG, UNK
     Route: 048
  3. NORVASC [Concomitant]
     Active Substance: AMLODIPINE BESYLATE
     Indication: PRODUCT USED FOR UNKNOWN INDICATION
     Dosage: 5 MG, UNK
     Route: 048
  4. TASIGNA [Suspect]
     Active Substance: NILOTINIB
     Dosage: UNK
  5. PLETAAL [Concomitant]
     Active Substance: CILOSTAZOL
     Indication: PRODUCT USED FOR UNKNOWN INDICATION
     Dosage: 200 MG, UNK
     Route: 048
     Dates: start: 20091020

REACTIONS (7)
  - Pneumonia cytomegaloviral [Fatal]
  - Respiratory failure [Fatal]
  - Blood urea increased [Not Recovered/Not Resolved]
  - Refusal of treatment by patient [Fatal]
  - Pneumonia fungal [Fatal]
  - Blood creatinine increased [Not Recovered/Not Resolved]
  - Pleural effusion [Fatal]

NARRATIVE: CASE EVENT DATE: 20091109
